FAERS Safety Report 11687950 (Version 2)
Quarter: 2015Q4

REPORT INFORMATION
  Report Type: Report from Study
  Country: US (occurrence: US)
  Receive Date: 20151030
  Receipt Date: 20151124
  Transmission Date: 20160304
  Serious: No
  Sender: FDA-Public Use
  Company Number: PHHY2015US130358

PATIENT
  Sex: Female

DRUGS (2)
  1. PROMACTA [Suspect]
     Active Substance: ELTROMBOPAG OLAMINE
     Indication: PRODUCT USED FOR UNKNOWN INDICATION
     Dosage: 50 MG, QD
     Route: 048
  2. PROMACTA [Suspect]
     Active Substance: ELTROMBOPAG OLAMINE
     Dosage: 50 MG, BID
     Route: 048

REACTIONS (1)
  - Platelet count decreased [Unknown]
